FAERS Safety Report 7592694-7 (Version None)
Quarter: 2011Q3

REPORT INFORMATION
  Report Type: 
  Country: None (occurrence: None)
  Receive Date: 20110706
  Receipt Date: 20110630
  Transmission Date: 20111222
  Serious: Yes (Death)
  Sender: FDA-Public Use
  Company Number: US-PFIZER INC-2010001660

PATIENT
  Age: 25 Year
  Sex: Female

DRUGS (6)
  1. TRAZODONE HCL [Suspect]
     Dosage: UNK
     Route: 048
     Dates: start: 20080101
  2. HYDROXYZINE [Suspect]
     Dosage: UNK
     Route: 048
     Dates: start: 20080101
  3. VENLAFAXINE HCL [Suspect]
     Dosage: UNK
     Route: 048
     Dates: start: 20080101
  4. TRAMADOL [Suspect]
     Dosage: UNK
     Route: 048
     Dates: start: 20080101
  5. ETHANOL [Suspect]
     Dosage: UNK
     Route: 048
     Dates: start: 20080101, end: 20080101
  6. CYPROHEPTADINE HCL [Suspect]
     Dosage: UNK
     Route: 048
     Dates: start: 20080101

REACTIONS (4)
  - RESPIRATORY ARREST [None]
  - DRUG ABUSE [None]
  - CARDIAC ARREST [None]
  - COMPLETED SUICIDE [None]
